FAERS Safety Report 6770882-7 (Version None)
Quarter: 2010Q2

REPORT INFORMATION
  Report Type: 
  Country: None (occurrence: None)
  Receive Date: 20100614
  Receipt Date: 20100528
  Transmission Date: 20101027
  Serious: Yes (Hospitalization)
  Sender: FDA-Public Use
  Company Number: AUR-APL-2010-01422

PATIENT
  Age: 55 Year
  Sex: Male

DRUGS (6)
  1. ZIDOVUDINE [Suspect]
     Indication: HIV INFECTION
  2. ABACAVIR [Suspect]
     Indication: HIV INFECTION
  3. EFAVIRENZ [Suspect]
  4. LAMIVUDINE [Suspect]
     Indication: HIV INFECTION
  5. LOPINAVIR [Suspect]
  6. RITONAVIR [Suspect]

REACTIONS (4)
  - AIDS ENCEPHALOPATHY [None]
  - COGNITIVE DISORDER [None]
  - CONFUSIONAL STATE [None]
  - MOBILITY DECREASED [None]
